FAERS Safety Report 10186546 (Version 2)
Quarter: 2014Q3

REPORT INFORMATION
  Report Type: Report from Study
  Country: US (occurrence: US)
  Receive Date: 20140521
  Receipt Date: 20140930
  Transmission Date: 20150326
  Serious: Yes (Hospitalization, Other)
  Sender: FDA-Public Use
  Company Number: PHEH2014US010222

PATIENT
  Age: 50 Year
  Sex: Male
  Weight: 58.96 kg

DRUGS (9)
  1. TOBI PODHALER [Suspect]
     Active Substance: TOBRAMYCIN
     Indication: CYSTIC FIBROSIS
     Dosage: 112 MG, BID
     Route: 055
     Dates: start: 201312
  2. CAYSTON [Concomitant]
     Active Substance: AZTREONAM
     Dosage: UNK UKN, UNK
  3. NEXIUM HP [Concomitant]
     Active Substance: AMOXICILLIN\CLARITHROMYCIN\ESOMEPRAZOLE
     Dosage: UNK UKN, UNK
  4. AZITHROMYCIN [Concomitant]
     Active Substance: AZITHROMYCIN ANHYDROUS
     Dosage: UNK UKN, UNK
  5. FLOMAX//MORNIFLUMATE [Concomitant]
     Dosage: UNK UKN, UNK
  6. PANCREAZE//PANCRELIPASE [Concomitant]
     Dosage: UNK UKN, UNK
  7. TOBI [Suspect]
     Active Substance: TOBRAMYCIN
     Indication: CYSTIC FIBROSIS
     Dosage: UNK MG/ML, BID (300 MG/5ML)
     Route: 055
  8. PROVENTIL [Concomitant]
     Active Substance: ALBUTEROL
     Dosage: UNK UKN, UNK
  9. PULMICORT TURBUHALER [Concomitant]
     Active Substance: BUDESONIDE
     Dosage: UNK UKN, UNK

REACTIONS (5)
  - Prostate infection [Not Recovered/Not Resolved]
  - Orchitis [Not Recovered/Not Resolved]
  - Tinnitus [Unknown]
  - Nasopharyngitis [Not Recovered/Not Resolved]
  - Deafness [Unknown]

NARRATIVE: CASE EVENT DATE: 201401
